FAERS Safety Report 16157690 (Version 1)
Quarter: 2019Q2

REPORT INFORMATION
  Report Type: Spontaneous
  Country: US (occurrence: US)
  Receive Date: 20190404
  Receipt Date: 20190404
  Transmission Date: 20190711
  Serious: No
  Sender: FDA-Public Use
  Company Number: US-FERRINGPH-2019FE01430

PATIENT
  Age: 80 Year
  Sex: Male
  Weight: 82.54 kg

DRUGS (1)
  1. NOCDURNA [Suspect]
     Active Substance: DESMOPRESSIN ACETATE
     Indication: PRODUCT USED FOR UNKNOWN INDICATION
     Dosage: 55.3 ?G, UNK
     Route: 060
     Dates: start: 20181212

REACTIONS (5)
  - Feeling abnormal [Recovered/Resolved]
  - Product colour issue [Recovered/Resolved]
  - Product shape issue [Recovered/Resolved]
  - Therapy cessation [Recovered/Resolved]
  - Stupor [Recovered/Resolved]

NARRATIVE: CASE EVENT DATE: 20181212
